FAERS Safety Report 7062742-1 (Version None)
Quarter: 2010Q4

REPORT INFORMATION
  Report Type: 
  Country: None (occurrence: None)
  Receive Date: 20101026
  Receipt Date: 20100122
  Transmission Date: 20110411
  Serious: No
  Sender: FDA-Public Use
  Company Number: US-PFIZER INC-2010011212

PATIENT
  Age: 60 Year
  Sex: Female

DRUGS (5)
  1. LIPITOR [Suspect]
     Indication: BLOOD CHOLESTEROL INCREASED
     Dosage: 20 MG, 1X/DAY
     Route: 048
     Dates: start: 20091220
  2. LIPITOR [Suspect]
     Indication: LOW DENSITY LIPOPROTEIN INCREASED
  3. LIPITOR [Suspect]
     Indication: FAMILIAL RISK FACTOR
  4. SYNTHROID [Concomitant]
     Dosage: 50 MCG/DAY
  5. ESTRADIOL [Concomitant]
     Dosage: 0.25 MG, 3X/DAY

REACTIONS (1)
  - MYALGIA [None]
